FAERS Safety Report 6192093-9 (Version None)
Quarter: 2009Q2

REPORT INFORMATION
  Report Type: 
  Country: None (occurrence: None)
  Receive Date: 20090515
  Receipt Date: 20090504
  Transmission Date: 20091009
  Serious: Yes (Life-Threatening, Hospitalization)
  Sender: FDA-Public Use
  Company Number: TR-PFIZER INC-2009201933

PATIENT
  Age: 68 Year

DRUGS (6)
  1. SUNITINIB MALATE [Suspect]
     Indication: GASTROINTESTINAL STROMAL TUMOUR
     Dosage: 50 MG, 1X/DAY, DAILY
     Route: 048
     Dates: start: 20070326, end: 20080403
  2. SUNITINIB MALATE [Suspect]
     Dosage: 25 MG, 1X/DAY, DAILY
     Route: 048
     Dates: start: 20080429, end: 20080526
  3. SUNITINIB MALATE [Suspect]
     Dosage: 37.5 MG, 1X/DAY, DAILY
     Route: 048
     Dates: start: 20080609
  4. RAMIPRIL [Concomitant]
     Indication: HYPERTENSION
     Dosage: UNK
     Route: 048
     Dates: start: 20080513, end: 20090419
  5. AMLODIPINE [Concomitant]
     Indication: HYPERTENSION
     Dosage: UNK
     Route: 048
     Dates: start: 20080513, end: 20090419
  6. FLUOXETINE [Concomitant]
     Indication: DEPRESSION
     Dosage: UNK
     Route: 048
     Dates: start: 20080513

REACTIONS (1)
  - CHOLANGITIS [None]
